FAERS Safety Report 25791720 (Version 1)
Quarter: 2025Q3

REPORT INFORMATION
  Report Type: Spontaneous
  Country: US (occurrence: US)
  Receive Date: 20250911
  Receipt Date: 20250911
  Transmission Date: 20251021
  Serious: Yes (Other)
  Sender: ROCHE
  Company Number: US-ROCHE-10000380961

PATIENT
  Sex: Male

DRUGS (10)
  1. LUCENTIS [Suspect]
     Active Substance: RANIBIZUMAB
     Indication: Diabetic retinal oedema
     Route: 065
  2. VABYSMO [Suspect]
     Active Substance: FARICIMAB-SVOA
     Indication: Diabetic retinal oedema
     Route: 050
  3. VABYSMO [Suspect]
     Active Substance: FARICIMAB-SVOA
     Route: 050
  4. AVASTIN [Suspect]
     Active Substance: BEVACIZUMAB
     Indication: Diabetic retinal oedema
     Route: 065
  5. EYLEA [Concomitant]
     Active Substance: AFLIBERCEPT
     Route: 050
  6. ROSUVASTATIN [Concomitant]
     Active Substance: ROSUVASTATIN
  7. NOVOLOG [Concomitant]
     Active Substance: INSULIN ASPART
  8. ADDERALL [Concomitant]
     Active Substance: AMPHETAMINE ASPARTATE\AMPHETAMINE SULFATE\DEXTROAMPHETAMINE SACCHARATE\DEXTROAMPHETAMINE SULFATE
  9. LOSARTAN [Concomitant]
     Active Substance: LOSARTAN
  10. AFLIBERCEPT [Concomitant]
     Active Substance: AFLIBERCEPT

REACTIONS (14)
  - Cataract [Unknown]
  - Cataract nuclear [Unknown]
  - Chorioretinitis [Unknown]
  - Pseudophakia [Unknown]
  - Off label use [Unknown]
  - Therapeutic response decreased [Unknown]
  - Blindness [Unknown]
  - Haemorrhage [Unknown]
  - Glaucoma [Unknown]
  - Dissociation [Unknown]
  - Retinal tear [Unknown]
  - Off label use [Unknown]
  - Off label use [Unknown]
  - Retinal thickening [Unknown]
